FAERS Safety Report 4287154-5 (Version None)
Quarter: 2004Q1

REPORT INFORMATION
  Report Type: 
  Country: None (occurrence: None)
  Receive Date: 20040121
  Receipt Date: 20030724
  Transmission Date: 20041129
  Serious: Yes (Hospitalization)
  Sender: FDA-Public Use
  Company Number: A03200301659

PATIENT
  Age: 71 Year
  Sex: Male
  Weight: 102.0593 kg

DRUGS (2)
  1. PLAVIX [Suspect]
     Indication: CARDIAC DISORDER
     Dosage: 75 MG QD - ORAL
     Route: 048
     Dates: start: 20020101, end: 20030701
  2. PLAVIX [Suspect]
     Indication: CARDIAC DISORDER
     Dosage: 75 MG QD - ORAL
     Route: 048
     Dates: start: 20030701

REACTIONS (1)
  - RECTAL HAEMORRHAGE [None]
